FAERS Safety Report 13865053 (Version 1)
Quarter: 2017Q3

REPORT INFORMATION
  Report Type: Spontaneous
  Country: IT (occurrence: IT)
  Receive Date: 20170814
  Receipt Date: 20170814
  Transmission Date: 20171127
  Serious: Yes (Other)
  Sender: FDA-Public Use
  Company Number: IT-PFIZER INC-2017341559

PATIENT
  Age: 2 Year
  Sex: Male

DRUGS (3)
  1. BENEFIX [Suspect]
     Active Substance: COAGULATION FACTOR IX RECOMBINANT HUMAN\ISOPROPYL ALCOHOL
     Indication: FACTOR IX DEFICIENCY
     Dosage: UNK, ON DEMAND
     Route: 041
  2. BENEFIX [Suspect]
     Active Substance: COAGULATION FACTOR IX RECOMBINANT HUMAN\ISOPROPYL ALCOHOL
     Dosage: 500 IU (33 IU/KG), OVER 5 MINUTES (0.8 ML/MIN)
     Route: 041
  3. BENEFIX [Suspect]
     Active Substance: COAGULATION FACTOR IX RECOMBINANT HUMAN\ISOPROPYL ALCOHOL
     Dosage: 33 IU/KG, 3 TIMES WEEKLY
     Route: 041

REACTIONS (9)
  - Dyspnoea [Recovering/Resolving]
  - Urticaria [Recovering/Resolving]
  - Retching [Recovered/Resolved]
  - Oxygen saturation decreased [Recovering/Resolving]
  - Tachycardia [Recovering/Resolving]
  - Flushing [Recovered/Resolved]
  - Cough [Recovered/Resolved]
  - Drug hypersensitivity [Unknown]
  - Factor IX inhibition [Unknown]
